FAERS Safety Report 5805957-X (Version None)
Quarter: 2008Q3

REPORT INFORMATION
  Report Type: 
  Country: None (occurrence: None)
  Receive Date: 20080710
  Receipt Date: 20080701
  Transmission Date: 20090109
  Serious: Yes (Death, Other)
  Sender: FDA-Public Use
  Company Number: US-ROCHE-573389

PATIENT
  Sex: Male

DRUGS (4)
  1. PEG-INTERFERON A-2A (RO 25-8310) [Suspect]
     Route: 065
     Dates: start: 20080318
  2. RIBAVIRIN [Suspect]
     Route: 065
     Dates: start: 20080318
  3. ATIVAN [Concomitant]
     Indication: ANXIETY
     Dosage: FREQUENCY: 3-4 X DAY
  4. SOMA [Concomitant]
     Indication: PAIN

REACTIONS (2)
  - BRAIN DEATH [None]
  - DEATH [None]
